FAERS Safety Report 5224659-4 (Version None)
Quarter: 2007Q1

REPORT INFORMATION
  Report Type: 
  Country: None (occurrence: None)
  Receive Date: 20070130
  Receipt Date: 20070117
  Transmission Date: 20070707
  Serious: Yes (Other)
  Sender: FDA-Public Use
  Company Number: US-SHR-US-2006-037973

PATIENT
  Age: 50 Year
  Sex: Female
  Weight: 70.295 kg

DRUGS (6)
  1. BETASERON [Suspect]
     Indication: SECONDARY PROGRESSIVE MULTIPLE SCLEROSIS
     Dosage: 8 MIU, EVERY 2D
     Route: 058
     Dates: start: 19990101, end: 20060101
  2. BETASERON [Suspect]
     Dosage: 8 MIU, EVERY 2D
     Route: 058
     Dates: start: 20061205
  3. AMITRIPTYLINE HCL [Suspect]
     Dosage: UNK, UNK
  4. AMITRIPTYLINE HCL [Suspect]
     Dosage: 300 MG, 1X/DAY
  5. CRESTOR [Concomitant]
     Dosage: 10 MG, UNK
     Route: 048
     Dates: start: 20030101
  6. AMANTADINE HCL [Concomitant]
     Indication: FATIGUE
     Dosage: 100 MG, UNK
     Route: 048
     Dates: start: 20010101

REACTIONS (9)
  - ABASIA [None]
  - ABDOMINAL PAIN [None]
  - ABDOMINAL PAIN UPPER [None]
  - ACCIDENTAL OVERDOSE [None]
  - INCOHERENT [None]
  - MOBILITY DECREASED [None]
  - PALPITATIONS [None]
  - POSTURE ABNORMAL [None]
  - SPEECH DISORDER [None]
